FAERS Safety Report 5659467-3 (Version None)
Quarter: 2008Q1

REPORT INFORMATION
  Report Type: 
  Country: None (occurrence: None)
  Receive Date: 20080311
  Receipt Date: 20080229
  Transmission Date: 20080703
  Serious: Yes (Hospitalization, Other)
  Sender: FDA-Public Use
  Company Number: US-NOVOPROD-265491

PATIENT
  Sex: Male

DRUGS (4)
  1. NORDITROPIN NORDIFLEX [Suspect]
     Indication: DWARFISM
     Dosage: 3.6 MG, SIX DAYS A WEEK
     Route: 058
     Dates: start: 20050125
  2. NORDITROPIN NORDIFLEX [Suspect]
     Dosage: 2.6 MG SIX DAYS A WEEK
     Route: 058
     Dates: start: 20050207
  3. VITAMIN C                          /00008001/ [Concomitant]
  4. VITAMIN CAP [Concomitant]

REACTIONS (1)
  - FIBROUS DYSPLASIA OF BONE [None]
